FAERS Safety Report 14825539 (Version 1)
Quarter: 2018Q2

REPORT INFORMATION
  Report Type: Report from Study
  Country: None (occurrence: US)
  Receive Date: 20180430
  Receipt Date: 20180430
  Transmission Date: 20180711
  Serious: Yes (Hospitalization, Other)
  Sender: FDA-Public Use
  Company Number: US-ABBVIE-18K-163-2332339-00

PATIENT
  Age: 36 Year
  Sex: Female
  Weight: 85.81 kg

DRUGS (3)
  1. HUMIRA [Suspect]
     Active Substance: ADALIMUMAB
     Indication: RHEUMATOID ARTHRITIS
     Route: 058
     Dates: start: 2010, end: 2018
  2. HUMIRA [Suspect]
     Active Substance: ADALIMUMAB
     Indication: REITER^S SYNDROME
     Route: 058
     Dates: start: 2018, end: 201802
  3. LO LOESTRIN FE [Concomitant]
     Active Substance: ETHINYL ESTRADIOL\NORETHINDRONE ACETATE
     Indication: CONTRACEPTION

REACTIONS (9)
  - Thrombosis [Recovered/Resolved]
  - Femur fracture [Recovered/Resolved]
  - Tibia fracture [Not Recovered/Not Resolved]
  - Off label use [Not Recovered/Not Resolved]
  - Genital herpes zoster [Recovered/Resolved]
  - Ligament rupture [Recovered/Resolved]
  - Loss of consciousness [Recovered/Resolved]
  - Thrombosis [Recovering/Resolving]
  - Genital herpes zoster [Recovered/Resolved]

NARRATIVE: CASE EVENT DATE: 2010
